FAERS Safety Report 10315119 (Version 2)
Quarter: 2015Q1

REPORT INFORMATION
  Report Type: Other
  Country: US (occurrence: US)
  Receive Date: 20140719
  Receipt Date: 20150319
  Transmission Date: 20150720
  Serious: Yes (Hospitalization, Other)
  Sender: FDA-Public Use
  Company Number: US-GSKPPD-2014GSK008049

PATIENT
  Age: 70 Year
  Sex: Male
  Weight: 87.62 kg

DRUGS (6)
  1. DIGOXIN. [Concomitant]
     Active Substance: DIGOXIN
  2. FUROSEMIDE. [Concomitant]
     Active Substance: FUROSEMIDE
  3. AVANDIA [Suspect]
     Active Substance: ROSIGLITAZONE MALEATE
     Indication: DIABETES MELLITUS
     Dosage: AVANDIA WAS NOT LISTED AMONG THE PATIENTS RECORDS REVIEWED.
     Route: 048
  4. CARVEDILOL. [Concomitant]
     Active Substance: CARVEDILOL
  5. BENICAR [Concomitant]
     Active Substance: OLMESARTAN MEDOXOMIL
  6. SPIRONOLACTONE. [Concomitant]
     Active Substance: SPIRONOLACTONE

REACTIONS (1)
  - Cardiac failure congestive [Recovered/Resolved]

NARRATIVE: CASE EVENT DATE: 20071128
